FAERS Safety Report 19091528 (Version 1)
Quarter: 2021Q2

REPORT INFORMATION
  Report Type: Spontaneous
  Country: US (occurrence: US)
  Receive Date: 20210405
  Receipt Date: 20210405
  Transmission Date: 20210717
  Serious: Yes (Hospitalization)
  Sender: FDA-Public Use
  Company Number: US-ROCHE-2799482

PATIENT
  Age: 67 Year
  Sex: Male

DRUGS (2)
  1. INSULIN ASPART [Concomitant]
     Active Substance: INSULIN ASPART
     Dosage: 80 U
  2. ESBRIET [Suspect]
     Active Substance: PIRFENIDONE
     Indication: IDIOPATHIC PULMONARY FIBROSIS
     Route: 048
     Dates: start: 20190411

REACTIONS (2)
  - Blood glucose increased [Unknown]
  - Coma [Unknown]

NARRATIVE: CASE EVENT DATE: 202103
